FAERS Safety Report 5362619-3 (Version None)
Quarter: 2007Q2

REPORT INFORMATION
  Report Type: 
  Country: None (occurrence: None)
  Receive Date: 20070619
  Receipt Date: 20070612
  Transmission Date: 20071010
  Serious: Yes (Other)
  Sender: FDA-Public Use
  Company Number: US-PFIZER INC-2006113073

PATIENT
  Sex: Female
  Weight: 59 kg

DRUGS (14)
  1. GEODON [Suspect]
     Indication: POST-TRAUMATIC STRESS DISORDER
     Route: 048
  2. GEODON [Suspect]
     Indication: SCHIZOAFFECTIVE DISORDER
  3. NAVANE [Suspect]
  4. ARTANE [Suspect]
     Indication: SCHIZOAFFECTIVE DISORDER
     Route: 048
     Dates: start: 19900101
  5. INSULIN [Concomitant]
  6. ALL OTHER THERAPEUTIC PRODUCTS [Concomitant]
  7. FLUOXETINE HYDROCHLORIDE [Concomitant]
  8. SIMVASTATIN [Concomitant]
  9. EFFEXOR XR [Concomitant]
  10. DEXTRAN INJ [Concomitant]
  11. CLORAZEPATE [Concomitant]
  12. THIOTHIXENE [Concomitant]
  13. ZOCOR [Concomitant]
  14. PROTONIX [Concomitant]

REACTIONS (8)
  - ADVERSE DRUG REACTION [None]
  - BLOOD CHOLESTEROL INCREASED [None]
  - DIABETES MELLITUS [None]
  - HYDROCEPHALUS [None]
  - IRRITABLE BOWEL SYNDROME [None]
  - MYDRIASIS [None]
  - POST-TRAUMATIC STRESS DISORDER [None]
  - SCHIZOAFFECTIVE DISORDER [None]
